FAERS Safety Report 18888891 (Version 1)
Quarter: 2021Q1

REPORT INFORMATION
  Report Type: Spontaneous
  Country: US (occurrence: US)
  Receive Date: 20210212
  Receipt Date: 20210212
  Transmission Date: 20210420
  Serious: No
  Sender: FDA-Public Use
  Company Number: US-ENDO PHARMACEUTICALS INC-2020-006926

PATIENT
  Age: 58 Year
  Sex: Male

DRUGS (1)
  1. METHYLPREDNISOLONE. [Suspect]
     Active Substance: METHYLPREDNISOLONE
     Indication: BACK PAIN
     Dosage: UNK UNKNOWN, UNKNOWN
     Route: 065
     Dates: start: 20201010, end: 20201016

REACTIONS (1)
  - Illness [Not Recovered/Not Resolved]

NARRATIVE: CASE EVENT DATE: 20201016
